FAERS Safety Report 5847507-8 (Version None)
Quarter: 2008Q3

REPORT INFORMATION
  Report Type: 
  Country: None (occurrence: None)
  Receive Date: 20080814
  Receipt Date: 20080805
  Transmission Date: 20090109
  Serious: Yes (Hospitalization)
  Sender: FDA-Public Use
  Company Number: 2008BI017851

PATIENT
  Age: 61 Year
  Sex: Female
  Weight: 67.586 kg

DRUGS (1)
  1. TYSABRI [Suspect]
     Indication: MULTIPLE SCLEROSIS
     Dosage: 300 MG; QM; IV
     Route: 042
     Dates: start: 20061025

REACTIONS (3)
  - ACCIDENT [None]
  - FALL [None]
  - HIP FRACTURE [None]
